FAERS Safety Report 24039160 (Version 2)
Quarter: 2024Q3

REPORT INFORMATION
  Report Type: Spontaneous
  Country: CO (occurrence: CO)
  Receive Date: 20240702
  Receipt Date: 20240709
  Transmission Date: 20241016
  Serious: Yes (Hospitalization, Other)
  Sender: ACCORD
  Company Number: CO-Accord-432343

PATIENT
  Age: 70 Year
  Sex: Female

DRUGS (2)
  1. METHOTREXATE [Suspect]
     Active Substance: METHOTREXATE
     Indication: Rheumatoid arthritis
  2. ABATACEPT [Suspect]
     Active Substance: ABATACEPT
     Indication: Rheumatoid arthritis

REACTIONS (7)
  - Uveitis [Unknown]
  - Necrotising retinitis [Unknown]
  - Epstein-Barr virus infection [Unknown]
  - Toxoplasmosis [Unknown]
  - Macular oedema [Recovering/Resolving]
  - Vitritis [Unknown]
  - Corneal oedema [Unknown]

NARRATIVE: CASE EVENT DATE: 20221101
